FAERS Safety Report 4849305-0 (Version None)
Quarter: 2005Q4

REPORT INFORMATION
  Report Type: 
  Country: None (occurrence: None)
  Receive Date: 20051207
  Receipt Date: 20051128
  Transmission Date: 20060501
  Serious: Yes (Hospitalization, Disabling, Other)
  Sender: FDA-Public Use
  Company Number: 2005161711

PATIENT
  Age: 52 Year
  Sex: Male
  Weight: 91.173 kg

DRUGS (9)
  1. CELEBREX [Suspect]
     Indication: PAIN
     Dosage: 200 MG (200 MG, DAILY  INTERVAL:  EVERY DAY)  3.5 YEARS AGO
  2. NORVASC [Concomitant]
  3. HYTRIN [Concomitant]
  4. PREVACID [Concomitant]
  5. XANAX [Concomitant]
  6. METHADONE HCL [Concomitant]
  7. VITAMINS (VITAMINS) [Concomitant]
  8. ASPIRIN [Concomitant]
  9. LIPITOR [Concomitant]

REACTIONS (5)
  - CORONARY ARTERY OCCLUSION [None]
  - INFLUENZA LIKE ILLNESS [None]
  - LUNG DISORDER [None]
  - PULMONARY OEDEMA [None]
  - SCAR [None]
